FAERS Safety Report 7929387-X (Version None)
Quarter: 2011Q4

REPORT INFORMATION
  Report Type: 
  Country: None (occurrence: None)
  Receive Date: 20111121
  Receipt Date: 20111115
  Transmission Date: 20120403
  Serious: No
  Sender: FDA-Public Use
  Company Number: US-BIOGENIDEC-2011BI043743

PATIENT
  Sex: Female

DRUGS (2)
  1. ALPRAZOLAM [Concomitant]
     Indication: ANXIETY
  2. TYSABRI [Suspect]
     Indication: MULTIPLE SCLEROSIS
     Route: 042
     Dates: start: 20100924

REACTIONS (4)
  - ANXIETY [None]
  - GAIT DISTURBANCE [None]
  - AFFECTIVE DISORDER [None]
  - DYSSTASIA [None]
